FAERS Safety Report 7509863-4 (Version None)
Quarter: 2011Q2

REPORT INFORMATION
  Report Type: 
  Country: None (occurrence: None)
  Receive Date: 20110527
  Receipt Date: 20110519
  Transmission Date: 20111010
  Serious: Yes (Congenital Anomaly)
  Sender: FDA-Public Use
  Company Number: B0720278A

PATIENT
  Sex: Male

DRUGS (1)
  1. LAMICTAL [Suspect]
     Indication: EPILEPSY
     Route: 064
     Dates: start: 20100307, end: 20101119

REACTIONS (5)
  - VESICOURETERIC REFLUX [None]
  - CONGENITAL MEGAURETER [None]
  - URETERIC DILATATION [None]
  - PYELOCALIECTASIS [None]
  - DRUG EXPOSURE DURING PREGNANCY [None]
